FAERS Safety Report 4261987-3 (Version None)
Quarter: 2004Q1

REPORT INFORMATION
  Report Type: 
  Country: None (occurrence: None)
  Receive Date: 20040102
  Receipt Date: 20031219
  Transmission Date: 20041129
  Serious: Yes (Death)
  Sender: FDA-Public Use
  Company Number: PHBS2003IN14344

PATIENT

DRUGS (1)
  1. DICLOFENAC SODIUM [Suspect]
     Indication: SURGERY
     Dosage: UNK, ONCE/SINGLE
     Route: 030

REACTIONS (1)
  - SUDDEN DEATH [None]
